FAERS Safety Report 14115915 (Version 1)
Quarter: 2017Q4

REPORT INFORMATION
  Report Type: Spontaneous
  Country: JP (occurrence: JP)
  Receive Date: 20171023
  Receipt Date: 20171023
  Transmission Date: 20180321
  Serious: Yes (Hospitalization, Other)
  Sender: FDA-Public Use
  Company Number: JP-MYLANLABS-2017M1065679

PATIENT
  Age: 5 Year
  Sex: Male

DRUGS (2)
  1. CLARITHROMYCIN MYLAN [Suspect]
     Active Substance: CLARITHROMYCIN
     Indication: PNEUMONIA MYCOPLASMAL
     Dosage: UNK
  2. CARBOCISTEINE [Suspect]
     Active Substance: CARBOCYSTEINE
     Indication: PNEUMONIA MYCOPLASMAL
     Dosage: UNK

REACTIONS (2)
  - Stevens-Johnson syndrome [Unknown]
  - Vanishing bile duct syndrome [Unknown]
